FAERS Safety Report 5007892-6 (Version None)
Quarter: 2006Q2

REPORT INFORMATION
  Report Type: 
  Country: None (occurrence: None)
  Receive Date: 20060522
  Receipt Date: 20060322
  Transmission Date: 20061013
  Serious: Yes (Disabling, Other)
  Sender: FDA-Public Use
  Company Number: GB-BRISTOL-MYERS SQUIBB COMPANY-13326780

PATIENT
  Age: 41 Year
  Sex: Male
  Weight: 66 kg

DRUGS (6)
  1. REYATAZ [Suspect]
     Indication: HIV INFECTION
     Dosage: RESTARTED AT 300 MG DAILY ON 01-MAR-2006
     Dates: start: 20050901, end: 20060321
  2. RITONAVIR [Concomitant]
     Indication: HIV INFECTION
     Dosage: DISCONTINUED AND RESTARTED ON 01-MAR-2006
     Route: 048
     Dates: start: 20050901
  3. TRUVADA [Concomitant]
     Indication: HIV INFECTION
     Route: 048
     Dates: start: 20060301
  4. DIDANOSINE [Concomitant]
     Indication: HIV INFECTION
     Dates: start: 20050901
  5. TENOFOVIR [Concomitant]
     Indication: HIV INFECTION
     Dates: start: 20050901
  6. CO-TRIMOXAZOLE [Concomitant]
     Indication: ANTIBIOTIC PROPHYLAXIS
     Route: 048
     Dates: start: 20060301

REACTIONS (4)
  - AFFECT LABILITY [None]
  - AGGRESSION [None]
  - DEPRESSION [None]
  - INSOMNIA [None]
